FAERS Safety Report 25841118 (Version 2)
Quarter: 2025Q4

REPORT INFORMATION
  Report Type: Report from Study
  Country: US (occurrence: US)
  Receive Date: 20250924
  Receipt Date: 20251001
  Transmission Date: 20260118
  Serious: Yes (Other)
  Sender: ABBVIE
  Company Number: US-ABBVIE-6472795

PATIENT
  Age: 23 Year
  Sex: Male
  Weight: 70.3 kg

DRUGS (1)
  1. RINVOQ [Suspect]
     Active Substance: UPADACITINIB
     Indication: Dermatitis atopic
     Route: 048
     Dates: start: 20250918, end: 20250921

REACTIONS (12)
  - Suicidal ideation [Recovering/Resolving]
  - Fatigue [Recovering/Resolving]
  - Insomnia [Recovering/Resolving]
  - Acne [Recovering/Resolving]
  - Dry skin [Recovering/Resolving]
  - Abdominal discomfort [Not Recovered/Not Resolved]
  - Mental impairment [Recovering/Resolving]
  - Feeling abnormal [Not Recovered/Not Resolved]
  - Mental disorder [Recovering/Resolving]
  - Decreased appetite [Recovered/Resolved]
  - Abdominal pain upper [Recovering/Resolving]
  - Movement disorder [Recovering/Resolving]

NARRATIVE: CASE EVENT DATE: 20250901
